FAERS Safety Report 17389709 (Version 1)
Quarter: 2020Q1

REPORT INFORMATION
  Report Type: Spontaneous
  Country: US (occurrence: US)
  Receive Date: 20200207
  Receipt Date: 20200207
  Transmission Date: 20200409
  Serious: Yes (Hospitalization)
  Sender: FDA-Public Use
  Company Number: US-TEVA-2020-US-1180796

PATIENT
  Age: 78 Year
  Sex: Male

DRUGS (1)
  1. NEFAZODONE HYDROCHLORIDE. [Suspect]
     Active Substance: NEFAZODONE HYDROCHLORIDE
     Dosage: TAKING THIS PRODUCT FOR 18 AND A HALF YEARS
     Route: 065

REACTIONS (3)
  - Arthralgia [Unknown]
  - Constipation [Unknown]
  - Back pain [Unknown]
